FAERS Safety Report 5214776-7 (Version None)
Quarter: 2007Q1

REPORT INFORMATION
  Report Type: 
  Country: None (occurrence: None)
  Receive Date: 20070122
  Receipt Date: 20070122
  Transmission Date: 20070707
  Serious: Yes (Other)
  Sender: FDA-Public Use
  Company Number: None

PATIENT
  Sex: Female
  Weight: 45.3597 kg

DRUGS (2)
  1. SERTRALINE [Suspect]
     Indication: ANXIETY
     Dosage: 50MG DAILY PO
     Route: 048
  2. SERTRALINE [Suspect]
     Indication: PREMENSTRUAL SYNDROME
     Dosage: 50MG DAILY PO
     Route: 048

REACTIONS (4)
  - ANXIETY [None]
  - FEELING ABNORMAL [None]
  - NIGHTMARE [None]
  - PHARMACEUTICAL PRODUCT COMPLAINT [None]
